FAERS Safety Report 6652812-1 (Version None)
Quarter: 2010Q1

REPORT INFORMATION
  Report Type: 
  Country: None (occurrence: None)
  Receive Date: 20100326
  Receipt Date: 20100312
  Transmission Date: 20100710
  Serious: Yes (Hospitalization, Other)
  Sender: FDA-Public Use
  Company Number: US-ELI_LILLY_AND_COMPANY-US201001005013

PATIENT
  Sex: Female

DRUGS (16)
  1. FORTEO [Suspect]
     Indication: OSTEOPOROSIS
     Dosage: 20 UG, DAILY (1/D)
     Dates: start: 20090801
  2. NEXIUM [Concomitant]
     Indication: DYSPEPSIA
     Dosage: 40 MG, DAILY (1/D)
  3. DETROL LA [Concomitant]
     Dosage: 4 MG, 2/D
     Dates: start: 20050101
  4. AMLODIPINE [Concomitant]
     Dosage: 10 MG, DAILY (1/D)
  5. LISINOPRIL [Concomitant]
     Dosage: UNK MG, 2/D
  6. HYDROCHLOROTHIAZIDE [Concomitant]
     Dosage: 12.5 MG, 2/D
  7. PILOCARPINE HYDROCHLORIDE [Concomitant]
     Dosage: 5 MG, 3/D
     Dates: start: 20010101
  8. HYDROXYCHLOROQUINE SULFATE [Concomitant]
     Dosage: 200 MG, UNK
  9. PRISTIQ [Concomitant]
     Dosage: 100 MG, DAILY (1/D)
  10. WELLBUTRIN [Concomitant]
     Dosage: 200 MG, 2/D
     Dates: start: 20000101
  11. SIMVASTATIN [Concomitant]
     Dosage: UNK, DAILY (1/D)
  12. TRAZODONE HCL [Concomitant]
     Dosage: 100 MG, DAILY (1/D)
     Dates: start: 20010101
  13. MIRAPEX [Concomitant]
     Dosage: 1 MG, 2/D
  14. VITAMIN D [Concomitant]
     Dosage: 50000 MG, 2/W
  15. SYNTHROID [Concomitant]
     Dosage: 150 MG, DAILY (1/D)
  16. POTASSIUM CHLORIDE [Concomitant]
     Dosage: 10 MG, DAILY (1/D)

REACTIONS (3)
  - FALL [None]
  - TIBIA FRACTURE [None]
  - WEIGHT BEARING DIFFICULTY [None]
